FAERS Safety Report 17078157 (Version 3)
Quarter: 2019Q4

REPORT INFORMATION
  Report Type: Report from Study
  Country: US (occurrence: US)
  Receive Date: 20191126
  Receipt Date: 20191219
  Transmission Date: 20200122
  Serious: Yes (Hospitalization)
  Sender: FDA-Public Use
  Company Number: US-ACTELION-A-NJ2019-195016

PATIENT
  Age: 26 Year
  Sex: Female
  Weight: 92.4 kg

DRUGS (11)
  1. IRON [Concomitant]
     Active Substance: IRON
  2. VELETRI [Suspect]
     Active Substance: EPOPROSTENOL
     Dosage: 14.5 NG/KG, PER MIN
     Route: 042
     Dates: start: 20190817
  3. PRENATAL VITAMINS [Concomitant]
     Active Substance: VITAMINS
  4. VELETRI [Suspect]
     Active Substance: EPOPROSTENOL
     Indication: PULMONARY ARTERIAL HYPERTENSION
     Dosage: 10 NG/KG, PER MIN
     Route: 042
     Dates: start: 20190817
  5. COLACE [Concomitant]
     Active Substance: DOCUSATE SODIUM
  6. VELETRI [Suspect]
     Active Substance: EPOPROSTENOL
     Dosage: 8 NG/KG, PER MIN
     Route: 042
     Dates: start: 201908
  7. SILDENAFIL CITRATE. [Concomitant]
     Active Substance: SILDENAFIL CITRATE
  8. PROTONIX [Concomitant]
     Active Substance: PANTOPRAZOLE SODIUM
  9. REVATIO [Concomitant]
     Active Substance: SILDENAFIL CITRATE
  10. ZOFRAN [Concomitant]
     Active Substance: ONDANSETRON HYDROCHLORIDE
  11. OXYGEN. [Concomitant]
     Active Substance: OXYGEN

REACTIONS (13)
  - Labour induction [Recovered/Resolved]
  - Vomiting [Unknown]
  - Catheter management [Recovered/Resolved]
  - Delivery [Unknown]
  - Foetal monitoring [Recovered/Resolved]
  - Exposure during pregnancy [Recovered/Resolved]
  - Complication associated with device [Recovered/Resolved]
  - Device dislocation [Recovered/Resolved]
  - Device connection issue [Recovered/Resolved]
  - Headache [Recovered/Resolved]
  - Malaise [Unknown]
  - Device alarm issue [Recovered/Resolved]
  - Nausea [Unknown]

NARRATIVE: CASE EVENT DATE: 201908
